FAERS Safety Report 9342435 (Version 1)
Quarter: 2013Q2

REPORT INFORMATION
  Report Type: Spontaneous
  Country: GB (occurrence: GB)
  Receive Date: 20130611
  Receipt Date: 20130611
  Transmission Date: 20140414
  Serious: Yes (Disabling)
  Sender: FDA-Public Use
  Company Number: PHHY2013GB056916

PATIENT
  Sex: Male

DRUGS (7)
  1. LAMOTRIGINE [Suspect]
     Dosage: 22 MG, QD
     Dates: end: 20130501
  2. DEPAKOTE [Suspect]
     Dosage: 500 MG, QD
  3. DEPAKOTE [Suspect]
     Dosage: 1000 MG, QD
  4. DEPAKOTE [Suspect]
     Dosage: 1500 MG, QD
     Dates: end: 201305
  5. VENLAFAXINE [Concomitant]
     Dosage: 225 MG
  6. MIRTAZAPINE [Concomitant]
     Dosage: 20 MG
  7. AMISULPRIDE [Concomitant]
     Dosage: 1000 MG

REACTIONS (5)
  - Chest pain [Recovered/Resolved]
  - Restlessness [Recovered/Resolved]
  - Palpitations [Recovered/Resolved]
  - Sensation of heaviness [Recovered/Resolved]
  - Rash [Recovered/Resolved]
